FAERS Safety Report 8485777 (Version 5)
Quarter: 2013Q3

REPORT INFORMATION
  Report Type: Report from Study
  Country: DE (occurrence: DE)
  Receive Date: 20120330
  Receipt Date: 20130910
  Transmission Date: 20140515
  Serious: Yes (Hospitalization, Disabling)
  Sender: FDA-Public Use
  Company Number: DE-AMGEN-DEUCT2011020273

PATIENT
  Age: 72 Year
  Sex: Female
  Weight: 80 kg

DRUGS (9)
  1. ETANERCEPT [Suspect]
     Indication: RHEUMATOID ARTHRITIS
     Dosage: 50 MG, QWK
     Route: 058
     Dates: start: 20100830, end: 20110620
  2. ARAVA [Concomitant]
     Indication: RHEUMATOID ARTHRITIS
     Dosage: 20 MG, 1X/DAY
     Route: 048
     Dates: start: 200808, end: 20110102
  3. ARAVA [Concomitant]
     Dosage: 20 MG, 3X/WEEK
     Route: 048
     Dates: start: 20110103, end: 2011
  4. ARAVA [Concomitant]
     Dosage: 10 MG, 1X/DAY
     Route: 048
  5. ALENDRONATE SODIUM [Concomitant]
     Indication: OSTEOPOROSIS
     Dosage: 70 MG, WEEKLY
     Route: 048
  6. DEKRISTOL [Concomitant]
     Indication: OSTEOPOROSIS
     Dosage: 20000 IU, WEEKLY
     Route: 048
  7. L-THYROXIN [Concomitant]
     Indication: HYPOTHYROIDISM
     Dosage: UNK
  8. METOPROLOL [Concomitant]
     Indication: HYPERTENSION
     Dosage: UNK
  9. MABTHERA [Concomitant]
     Indication: RHEUMATOID ARTHRITIS
     Dosage: UNK
     Dates: start: 201107

REACTIONS (5)
  - Bone marrow toxicity [Recovered/Resolved with Sequelae]
  - Hepatic cirrhosis [Recovered/Resolved]
  - Gastroenteritis rotavirus [Recovered/Resolved]
  - Enterocolitis bacterial [Recovered/Resolved]
  - Pancytopenia [Not Recovered/Not Resolved]
